FAERS Safety Report 15004582 (Version 1)
Quarter: 2018Q2

REPORT INFORMATION
  Report Type: Spontaneous
  Country: US (occurrence: US)
  Receive Date: 20180521
  Receipt Date: 20180521
  Transmission Date: 20180711
  Serious: Yes (Hospitalization)
  Sender: FDA-Public Use
  Company Number: None

PATIENT
  Age: 81 Year
  Sex: Female
  Weight: 61.6 kg

DRUGS (11)
  1. PEPCID [Concomitant]
     Active Substance: FAMOTIDINE
  2. ZOLOFT [Concomitant]
     Active Substance: SERTRALINE HYDROCHLORIDE
  3. LEVEMIR [Suspect]
     Active Substance: INSULIN DETEMIR
     Indication: DIABETES MELLITUS
     Route: 058
  4. KEPPRA [Concomitant]
     Active Substance: LEVETIRACETAM
  5. REMERON [Concomitant]
     Active Substance: MIRTAZAPINE
  6. RENAVITE [Concomitant]
     Active Substance: ASCORBIC ACID\BIOTIN\CALCIUM PANTOTHENATE\CYANOCOBALAMIN\FOLIC ACID\NIACINAMIDE\PYRIDOXINE HYDROCHLORIDE\RIBOFLAVIN\THIAMINE MONONITRATE
  7. APAP [Concomitant]
     Active Substance: ACETAMINOPHEN
  8. NEURONTIN [Concomitant]
     Active Substance: GABAPENTIN
  9. MEGACE [Concomitant]
     Active Substance: MEGESTROL ACETATE
  10. SENSIPAR [Concomitant]
     Active Substance: CINACALCET HYDROCHLORIDE
  11. RENVELA [Concomitant]
     Active Substance: SEVELAMER CARBONATE

REACTIONS (3)
  - Hypoglycaemia [None]
  - Hypophagia [None]
  - Pneumonia [None]

NARRATIVE: CASE EVENT DATE: 20180201
